FAERS Safety Report 15256793 (Version 2)
Quarter: 2018Q3

REPORT INFORMATION
  Report Type: Other
  Country: NL (occurrence: NL)
  Receive Date: 20180808
  Receipt Date: 20180831
  Transmission Date: 20181010
  Serious: Yes (Life-Threatening, Hospitalization)
  Sender: FDA-Public Use
  Company Number: NL-NOSTRUM LABORATORIES, INC.-2053466

PATIENT
  Age: 49 Year
  Sex: Male

DRUGS (1)
  1. METFORMIN HYDROCHLORIDE EXTENDED?RELEASE [Suspect]
     Active Substance: METFORMIN HYDROCHLORIDE
     Indication: TYPE 2 DIABETES MELLITUS
     Route: 048

REACTIONS (6)
  - Haemodynamic instability [Recovered/Resolved]
  - Generalised tonic-clonic seizure [Recovered/Resolved]
  - Coma [Recovered/Resolved]
  - Hypothermia [Recovered/Resolved]
  - Intentional overdose [Recovered/Resolved]
  - Lactic acidosis [Recovered/Resolved]
